FAERS Safety Report 9153475 (Version 1)
Quarter: 2013Q1

REPORT INFORMATION
  Report Type: Report from Study
  Country: US (occurrence: US)
  Receive Date: 20130311
  Receipt Date: 20130311
  Transmission Date: 20140127
  Serious: No
  Sender: FDA-Public Use
  Company Number: US-009507513-1303USA003343

PATIENT
  Sex: Female

DRUGS (6)
  1. VICTRELIS [Suspect]
     Indication: CHRONIC HEPATITIS C
     Dosage: 800 MG, TID
     Dates: start: 20111007, end: 20120521
  2. RIBAVIRIN (WARRICK) [Suspect]
     Indication: CHRONIC HEPATITIS C
     Dosage: 1200 MG, QD
     Route: 048
     Dates: start: 20110909
  3. RIBAVIRIN (WARRICK) [Suspect]
     Dosage: 1000 MG DAILY IN DIVIDED DOSES
     Route: 048
  4. RIBAVIRIN (WARRICK) [Suspect]
     Dosage: 600 MG, QD
     Route: 048
  5. PEGASYS [Suspect]
     Indication: CHRONIC HEPATITIS C
     Dosage: 180 MICROGRAM, QW
     Route: 058
     Dates: start: 20110909
  6. PEGASYS [Suspect]
     Dosage: 135 MICROGRAM, QW
     Route: 058

REACTIONS (11)
  - Fatigue [Unknown]
  - Diarrhoea [Unknown]
  - Haemorrhoids [Unknown]
  - Haemoglobin decreased [Unknown]
  - Dyspnoea [Unknown]
  - Decreased appetite [Unknown]
  - Abdominal discomfort [Unknown]
  - Pyrexia [Unknown]
  - Photophobia [Unknown]
  - Asthenia [Unknown]
  - Frequent bowel movements [Unknown]
